FAERS Safety Report 21801204 (Version 1)
Quarter: 2022Q4

REPORT INFORMATION
  Report Type: Report from Study
  Country: US (occurrence: US)
  Receive Date: 20221230
  Receipt Date: 20221230
  Transmission Date: 20230113
  Serious: No
  Sender: FDA-Public Use
  Company Number: US-ACORDA-ACO_171700_2022

PATIENT
  Sex: Male

DRUGS (3)
  1. INBRIJA [Suspect]
     Active Substance: LEVODOPA
     Indication: On and off phenomenon
     Dosage: 2 CAPSULES (84 MG) AS NEEDED NOT TO EXCEED 5 DOSES A DAY
  2. INBRIJA [Suspect]
     Active Substance: LEVODOPA
     Indication: Parkinson^s disease
  3. CARBIDOPA\LEVODOPA [Concomitant]
     Active Substance: CARBIDOPA\LEVODOPA
     Indication: Product used for unknown indication
     Dosage: 2 DOSAGE FORM (PILLS), QID
     Route: 065

REACTIONS (3)
  - Movement disorder [Not Recovered/Not Resolved]
  - Therapeutic product effect variable [Unknown]
  - Device use issue [Unknown]
